FAERS Safety Report 5301009-6 (Version None)
Quarter: 2007Q2

REPORT INFORMATION
  Report Type: 
  Country: None (occurrence: None)
  Receive Date: 20070418
  Receipt Date: 20070112
  Transmission Date: 20071010
  Serious: No
  Sender: FDA-Public Use
  Company Number: US-AMGEN-US206681

PATIENT
  Sex: Male

DRUGS (17)
  1. SENSIPAR [Suspect]
     Indication: HYPERPARATHYROIDISM SECONDARY
     Route: 065
     Dates: start: 20061015
  2. EPOGEN [Suspect]
     Indication: RENAL FAILURE CHRONIC
     Route: 065
  3. CLONIDINE [Concomitant]
     Route: 065
  4. HALCION [Concomitant]
     Route: 065
  5. IMODIUM [Concomitant]
     Route: 065
  6. LANTUS [Concomitant]
     Route: 065
  7. NOVOLOG [Concomitant]
     Route: 065
  8. PROZAC [Concomitant]
     Route: 065
  9. RENAGEL [Concomitant]
     Route: 065
  10. SYNTHROID [Concomitant]
     Route: 065
  11. TOPROL-XL [Concomitant]
     Route: 065
  12. TRICOR [Concomitant]
     Route: 065
  13. VICODIN [Concomitant]
     Route: 065
  14. ZESTRIL [Concomitant]
     Route: 065
  15. ZEMPLAR [Concomitant]
     Route: 065
  16. HEPARIN [Concomitant]
     Route: 065
  17. ASPIRIN [Concomitant]
     Route: 065

REACTIONS (1)
  - GASTROINTESTINAL DISORDER [None]
